FAERS Safety Report 4422866-1 (Version None)
Quarter: 2004Q3

REPORT INFORMATION
  Report Type: 
  Country: None (occurrence: None)
  Receive Date: 20040811
  Receipt Date: 20040730
  Transmission Date: 20050211
  Serious: Yes (Hospitalization)
  Sender: FDA-Public Use
  Company Number: FR-JNJFOC-20040800029

PATIENT
  Age: 70 Year
  Sex: Male
  Weight: 80 kg

DRUGS (12)
  1. REMICADE [Suspect]
     Indication: RHEUMATOID ARTHRITIS
     Dosage: 5 DOSES.
     Route: 042
  2. IMUREL [Concomitant]
     Route: 049
     Dates: start: 20040515, end: 20040701
  3. PREDNISONE TAB [Concomitant]
     Route: 049
  4. METHOTREXATE [Concomitant]
     Route: 065
  5. ENDOXAN [Concomitant]
     Route: 065
  6. OROCAL [Concomitant]
     Route: 065
  7. FOSAMAX [Concomitant]
     Route: 065
  8. COUMADIN [Concomitant]
     Route: 065
  9. DILTIAZEM HYDROCHLORIDE [Concomitant]
     Route: 065
  10. FONZYLANE [Concomitant]
     Route: 065
  11. RIVOTRIL [Concomitant]
     Route: 065
  12. SKENAN [Concomitant]
     Route: 065

REACTIONS (2)
  - RASH MACULO-PAPULAR [None]
  - TOXIC SKIN ERUPTION [None]
